FAERS Safety Report 18336075 (Version 3)
Quarter: 2025Q1

REPORT INFORMATION
  Report Type: Spontaneous
  Country: CA (occurrence: CA)
  Receive Date: 20201001
  Receipt Date: 20250327
  Transmission Date: 20250409
  Serious: Yes (Other)
  Sender: ALEXION PHARMACEUTICALS
  Company Number: 2020SF23329

PATIENT
  Age: 47 Year

DRUGS (27)
  1. BUDESONIDE [Suspect]
     Active Substance: BUDESONIDE
     Indication: Product used for unknown indication
     Dosage: 9 MILLIGRAM, QD
  2. BUDESONIDE [Suspect]
     Active Substance: BUDESONIDE
     Dosage: 6 MILLIGRAM, QD
  3. HYDROCORTISONE [Suspect]
     Active Substance: HYDROCORTISONE
     Indication: Product used for unknown indication
     Route: 065
  4. MESALAMINE [Suspect]
     Active Substance: MESALAMINE
     Indication: Product used for unknown indication
     Route: 065
  5. MESALAMINE [Suspect]
     Active Substance: MESALAMINE
     Route: 065
  6. MESALAMINE [Suspect]
     Active Substance: MESALAMINE
     Route: 065
  7. MESALAMINE [Concomitant]
     Active Substance: MESALAMINE
     Indication: Product used for unknown indication
     Route: 065
  8. APIXABAN [Concomitant]
     Active Substance: APIXABAN
     Indication: Product used for unknown indication
     Dosage: 5 MILLIGRAM, BID
     Route: 065
  9. CALCIUM [Concomitant]
     Active Substance: CALCIUM
     Indication: Product used for unknown indication
     Route: 065
  10. CIPRO [Concomitant]
     Active Substance: CIPROFLOXACIN HYDROCHLORIDE
     Indication: Product used for unknown indication
     Route: 065
  11. CORTIFOAM [Concomitant]
     Active Substance: HYDROCORTISONE ACETATE
     Indication: Product used for unknown indication
     Route: 065
  12. ENTOCORT [Concomitant]
     Active Substance: BUDESONIDE
     Indication: Product used for unknown indication
     Dosage: 9 MILLIGRAM, QD
     Route: 065
  13. FLAGYL [Concomitant]
     Active Substance: METRONIDAZOLE\METRONIDAZOLE HYDROCHLORIDE
     Indication: Product used for unknown indication
     Dosage: 500 MILLIGRAM, TID
  14. METRONIDAZOLE [Concomitant]
     Active Substance: METRONIDAZOLE
     Indication: Product used for unknown indication
     Dosage: 500 MILLIGRAM, QD
     Route: 065
  15. METRONIDAZOLE [Concomitant]
     Active Substance: METRONIDAZOLE
     Dosage: 500 MILLIGRAM, BID
  16. MESALAMINE [Concomitant]
     Active Substance: MESALAMINE
     Indication: Product used for unknown indication
     Dosage: 4 GRAM, QD
     Route: 065
  17. MESALAMINE [Concomitant]
     Active Substance: MESALAMINE
     Dosage: 2.4 GRAM, QD
     Route: 065
  18. MYCOPHENOLATE MOFETIL [Concomitant]
     Active Substance: MYCOPHENOLATE MOFETIL
     Indication: Liver transplant
     Dosage: 1000 MILLIGRAM, BID
  19. MYCOPHENOLATE MOFETIL [Concomitant]
     Active Substance: MYCOPHENOLATE MOFETIL
  20. PANTOPRAZOLE [Concomitant]
     Active Substance: PANTOPRAZOLE
     Indication: Product used for unknown indication
     Route: 065
  21. PAROXETINE [Concomitant]
     Active Substance: PAROXETINE
     Indication: Product used for unknown indication
  22. TEMSIROLIMUS [Concomitant]
     Active Substance: TEMSIROLIMUS
     Indication: Product used for unknown indication
     Dosage: 3 MILLIGRAM, QD
  23. PENTASA [Concomitant]
     Active Substance: MESALAMINE
     Indication: Product used for unknown indication
     Route: 065
  24. URSODIOL [Concomitant]
     Active Substance: URSODIOL
     Indication: Product used for unknown indication
     Dosage: 500 MILLIGRAM, BID
     Route: 065
  25. VITAMIN B COMPLEX [Concomitant]
     Active Substance: CYANOCOBALAMIN\DEXPANTHENOL\NIACINAMIDE\PYRIDOXINE HYDROCHLORIDE\RIBOFLAVIN 5^-PHOSPHATE SODIUM\THIA
     Indication: Product used for unknown indication
     Dosage: 1 DOSAGE FORM, QD
     Route: 065
  26. VITAMIN D [Concomitant]
     Active Substance: VITAMIN D NOS
     Indication: Product used for unknown indication
     Dosage: UNK UNK, QD
     Route: 065
  27. SIROLIMUS [Concomitant]
     Active Substance: SIROLIMUS
     Indication: Product used for unknown indication
     Route: 065

REACTIONS (8)
  - Aphthous ulcer [Unknown]
  - Crohn^s disease [Unknown]
  - Diarrhoea [Unknown]
  - Frequent bowel movements [Unknown]
  - Gastrointestinal inflammation [Unknown]
  - Gastrointestinal ulcer [Unknown]
  - Pouchitis [Unknown]
  - Proctitis [Unknown]
